FAERS Safety Report 8812762 (Version 1)
Quarter: 2012Q4

REPORT INFORMATION
  Report Type: 
  Country: US (occurrence: US)
  Receive Date: 20120927
  Receipt Date: 20120927
  Transmission Date: 20130627
  Serious: No
  Sender: FDA-Public Use
  Company Number: US-ASTRAZENECA-2012SE72650

PATIENT
  Age: 49 Year
  Sex: Female

DRUGS (7)
  1. ATENOLOL [Suspect]
     Route: 048
  2. CAPRELSA [Suspect]
     Route: 048
     Dates: start: 20120914
  3. ERYTHROMYCIN BASE [Concomitant]
  4. HYDROCHLOROTHIAZIDE [Concomitant]
  5. SYNTHROID [Concomitant]
  6. VIT D [Concomitant]
  7. ZYRTEC [Concomitant]

REACTIONS (5)
  - Chest discomfort [Unknown]
  - Palpitations [Unknown]
  - Chills [Unknown]
  - Blood pressure increased [Unknown]
  - Diarrhoea [Unknown]
